FAERS Safety Report 6162003-9 (Version None)
Quarter: 2009Q2

REPORT INFORMATION
  Report Type: 
  Country: None (occurrence: None)
  Receive Date: 20090421
  Receipt Date: 20090416
  Transmission Date: 20091009
  Serious: Yes (Other)
  Sender: FDA-Public Use
  Company Number: ES-MERCK-0904ESP00039

PATIENT
  Sex: Male

DRUGS (1)
  1. SINGULAIR [Suspect]
     Route: 048
     Dates: start: 20090401, end: 20090413

REACTIONS (4)
  - AGGRESSION [None]
  - INSOMNIA [None]
  - NERVOUSNESS [None]
  - TACHYCARDIA [None]
